FAERS Safety Report 23370190 (Version 2)
Quarter: 2024Q1

REPORT INFORMATION
  Report Type: Spontaneous
  Country: IT (occurrence: IT)
  Receive Date: 20240105
  Receipt Date: 20240109
  Transmission Date: 20240410
  Serious: Yes (Death, Other)
  Sender: FDA-Public Use
  Company Number: IT-CHIESI-2023CHF06887

PATIENT
  Age: 53 Year
  Sex: Male

DRUGS (6)
  1. HEPARIN SODIUM [Suspect]
     Active Substance: HEPARIN SODIUM
     Indication: Anticoagulant therapy
     Dosage: UNK
  2. HEPARIN SODIUM [Suspect]
     Active Substance: HEPARIN SODIUM
     Indication: Antiplatelet therapy
  3. ASPIRIN [Suspect]
     Active Substance: ASPIRIN
     Indication: Anticoagulant therapy
     Dosage: UNK
  4. ASPIRIN [Suspect]
     Active Substance: ASPIRIN
     Indication: Antiplatelet therapy
  5. CANGRELOR TETRASODIUM [Suspect]
     Active Substance: CANGRELOR TETRASODIUM
     Indication: Anticoagulant therapy
     Dosage: UNK
     Route: 042
  6. CANGRELOR TETRASODIUM [Suspect]
     Active Substance: CANGRELOR TETRASODIUM
     Indication: Antiplatelet therapy

REACTIONS (5)
  - Haemodynamic instability [Fatal]
  - Ventricular fibrillation [Fatal]
  - Cardiac arrest [Fatal]
  - Subdural haematoma [Fatal]
  - Subarachnoid haemorrhage [Fatal]
